FAERS Safety Report 16145752 (Version 1)
Quarter: 2019Q2

REPORT INFORMATION
  Report Type: Spontaneous
  Country: US (occurrence: US)
  Receive Date: 20190227
  Receipt Date: 20190227
  Transmission Date: 20190711
  Serious: Yes (Hospitalization, Other)
  Sender: FDA-Public Use
  Company Number: None

PATIENT
  Age: 64 Year
  Sex: Male
  Weight: 92.53 kg

DRUGS (4)
  1. PRALUENT [Suspect]
     Active Substance: ALIROCUMAB
     Indication: HYPERLIPIDAEMIA
     Route: 030
     Dates: start: 20180201
  2. ZETIA [Concomitant]
     Active Substance: EZETIMIBE
  3. CRESTOR [Concomitant]
     Active Substance: ROSUVASTATIN CALCIUM
  4. WELCHOL [Concomitant]
     Active Substance: COLESEVELAM HYDROCHLORIDE

REACTIONS (14)
  - Influenza [None]
  - Photopsia [None]
  - Pneumonia [None]
  - Cough [None]
  - Pyrexia [None]
  - Hepatic enzyme increased [None]
  - Neuralgic amyotrophy [None]
  - Nausea [None]
  - Headache [None]
  - Visual impairment [None]
  - Myalgia [None]
  - Decreased appetite [None]
  - Bronchitis viral [None]
  - Hypergammaglobulinaemia benign monoclonal [None]

NARRATIVE: CASE EVENT DATE: 20180102
